FAERS Safety Report 4705452-5 (Version None)
Quarter: 2005Q2

REPORT INFORMATION
  Report Type: 
  Country: None (occurrence: None)
  Receive Date: 20050629
  Receipt Date: 20050513
  Transmission Date: 20051028
  Serious: Yes (Other)
  Sender: FDA-Public Use
  Company Number: 200514348GDDC

PATIENT
  Age: 52 Year
  Sex: Female
  Weight: 72.12 kg

DRUGS (10)
  1. QVAR 40 [Suspect]
     Indication: ASTHMA
     Dosage: 640 UG/DAY INH
     Route: 055
     Dates: start: 20040510, end: 20050512
  2. QVAR 40 [Suspect]
     Indication: ASTHMA
  3. QVAR 40 [Suspect]
     Indication: ASTHMA
  4. QVAR 40 [Suspect]
     Indication: ASTHMA
  5. QVAR 40 [Suspect]
     Indication: ASTHMA
  6. QVAR 40 [Suspect]
     Indication: ASTHMA
  7. SEREVENT [Suspect]
     Indication: ASTHMA
     Dosage: 50 UG/DAY INH
     Route: 055
     Dates: start: 20020221
  8. ASPIRIN [Suspect]
     Dosage: 81 MG/DAY PO
     Route: 048
     Dates: start: 20010801
  9. ORTHO-NOVUM 7/7/7-21 [Suspect]
     Dosage: QD PO
     Route: 048
     Dates: start: 20030301
  10. PROVENTIL [Concomitant]

REACTIONS (4)
  - ARRHYTHMIA [None]
  - EXTRASYSTOLES [None]
  - HYPERTENSION [None]
  - STRESS [None]
